FAERS Safety Report 9976857 (Version 1)
Quarter: 2014Q1

REPORT INFORMATION
  Report Type: Report from Study
  Country: US (occurrence: US)
  Receive Date: 20140306
  Receipt Date: 20140306
  Transmission Date: 20141002
  Serious: No
  Sender: FDA-Public Use
  Company Number: US-ABBVIE-13P-163-1166276-00

PATIENT
  Age: 8 Year
  Sex: Female
  Weight: 33.6 kg

DRUGS (2)
  1. HUMIRA [Suspect]
     Indication: UVEITIS
     Dates: start: 20131023
  2. CELLCEPT [Concomitant]
     Indication: UVEITIS

REACTIONS (2)
  - Pharyngitis streptococcal [Recovered/Resolved]
  - Injection site pain [Recovered/Resolved]
